FAERS Safety Report 14233256 (Version 1)
Quarter: 2017Q4

REPORT INFORMATION
  Report Type: Report from Study
  Country: US (occurrence: US)
  Receive Date: 20171129
  Receipt Date: 20171129
  Transmission Date: 20180321
  Serious: Yes (Hospitalization)
  Sender: FDA-Public Use
  Company Number: US-BAYER-2017-225015

PATIENT
  Age: 39 Year
  Sex: Male

DRUGS (3)
  1. ASPIRIN. [Suspect]
     Active Substance: ASPIRIN
     Dosage: UNK
  2. DIPYRIDAMOLE. [Interacting]
     Active Substance: DIPYRIDAMOLE
  3. WARFARIN [Interacting]
     Active Substance: WARFARIN

REACTIONS (8)
  - Cerebellar haemorrhage [Recovered/Resolved]
  - Device related thrombosis [None]
  - Therapy cessation [None]
  - Labelled drug-drug interaction medication error [Recovered/Resolved]
  - Intraventricular haemorrhage [Recovered/Resolved]
  - Drug administration error [Recovered/Resolved]
  - Hydrocephalus [Recovered/Resolved]
  - Acquired Von Willebrand^s disease [None]
